FAERS Safety Report 21596608 (Version 1)
Quarter: 2022Q4

REPORT INFORMATION
  Report Type: Spontaneous
  Country: LU (occurrence: LU)
  Receive Date: 20221115
  Receipt Date: 20221115
  Transmission Date: 20230112
  Serious: Yes (Other)
  Sender: FDA-Public Use
  Company Number: None

PATIENT
  Age: 69 Year
  Sex: Male
  Weight: 103 kg

DRUGS (38)
  1. BISOPROLOL [Suspect]
     Active Substance: BISOPROLOL
     Indication: Product used for unknown indication
     Dosage: 1.25 MG, QD
     Route: 048
     Dates: start: 20200331, end: 20200405
  2. PROPOFOL [Suspect]
     Active Substance: PROPOFOL
     Indication: Product used for unknown indication
     Dosage: 200 MG PER HOUR
     Route: 041
     Dates: start: 20200323, end: 20200407
  3. PROPOFOL LIPURO [Suspect]
     Active Substance: PROPOFOL
     Indication: Product used for unknown indication
     Dosage: 10 MG PER HOUR
     Route: 041
     Dates: start: 20200320, end: 20200321
  4. PROPOFOL LIPURO [Suspect]
     Active Substance: PROPOFOL
     Dosage: 20 MG BEFORE CARE
     Route: 041
     Dates: start: 20200320
  5. NIMBEX [Suspect]
     Active Substance: CISATRACURIUM BESYLATE
     Indication: Product used for unknown indication
     Dosage: 10 MG PER HOUR
     Route: 041
     Dates: start: 20200316, end: 20200317
  6. NIMBEX [Suspect]
     Active Substance: CISATRACURIUM BESYLATE
     Dosage: 10 MG PER HOUR
     Route: 041
     Dates: start: 20200323, end: 20200328
  7. NICARDIPINE HYDROCHLORIDE [Suspect]
     Active Substance: NICARDIPINE HYDROCHLORIDE
     Indication: Product used for unknown indication
     Dosage: UNK (2 - 5 MILLIGRAM PER HOUR)
     Route: 042
  8. CLONIDINE [Suspect]
     Active Substance: CLONIDINE
     Indication: Product used for unknown indication
     Dosage: UNK (20 - 30 MICROGRAM/HOUR)
     Route: 041
  9. PIRITRAMIDE [Suspect]
     Active Substance: PIRITRAMIDE
     Indication: Product used for unknown indication
     Dosage: 1 MG PER HOUR
     Route: 041
     Dates: start: 20200320, end: 20200323
  10. PIRITRAMIDE [Suspect]
     Active Substance: PIRITRAMIDE
     Dosage: 1 MG PER HOUR
     Route: 041
     Dates: start: 20200402, end: 20200415
  11. ERYTHROCIN [Suspect]
     Active Substance: ERYTHROMYCIN LACTOBIONATE
     Indication: Product used for unknown indication
     Dosage: 125 MG, QID
     Route: 042
     Dates: start: 20200329, end: 20200401
  12. ACETYLCYSTEINE [Suspect]
     Active Substance: ACETYLCYSTEINE
     Indication: Product used for unknown indication
     Dosage: 300 MG, QID
     Route: 042
     Dates: start: 20200316, end: 20200408
  13. KALETRA [Suspect]
     Active Substance: LOPINAVIR\RITONAVIR
     Indication: COVID-19 pneumonia
     Dosage: 5 ML, BID
     Route: 048
     Dates: start: 20200317, end: 20200320
  14. PLAQUENIL [Suspect]
     Active Substance: HYDROXYCHLOROQUINE SULFATE
     Indication: COVID-19 pneumonia
     Dosage: 400 MG, BID
     Route: 048
     Dates: start: 20200317, end: 20200317
  15. PLAQUENIL [Suspect]
     Active Substance: HYDROXYCHLOROQUINE SULFATE
     Dosage: 200 MG, BID
     Route: 048
     Dates: start: 20200318, end: 20200327
  16. LEVOPHED [Suspect]
     Active Substance: NOREPINEPHRINE BITARTRATE
     Indication: Product used for unknown indication
     Dosage: 6.8 MG PER HOUR
     Route: 041
     Dates: start: 20200316, end: 20200321
  17. LEVOPHED [Suspect]
     Active Substance: NOREPINEPHRINE BITARTRATE
     Dosage: 6.8 MG HOURLY
     Route: 041
     Dates: start: 20200328, end: 20200330
  18. SUFENTA [Suspect]
     Active Substance: SUFENTANIL CITRATE
     Indication: Product used for unknown indication
     Dosage: 10 ?G PER HOUR
     Route: 041
     Dates: start: 20200316, end: 20200320
  19. SUFENTA [Suspect]
     Active Substance: SUFENTANIL CITRATE
     Dosage: 15 ?G PER HOUR
     Route: 041
     Dates: start: 20200323, end: 20200402
  20. CEFTRIAXONE [Concomitant]
     Active Substance: CEFTRIAXONE
     Indication: Product used for unknown indication
     Dosage: 2 G, QD
     Route: 042
     Dates: start: 20200316, end: 20200318
  21. LASIX [Concomitant]
     Active Substance: FUROSEMIDE
     Indication: Product used for unknown indication
     Dosage: 20 MG, QD
     Route: 042
     Dates: start: 20200317, end: 20200419
  22. AZACTAM [Concomitant]
     Active Substance: AZTREONAM
     Indication: Product used for unknown indication
     Dosage: 2 G, TID
     Route: 042
     Dates: start: 20200406, end: 20200412
  23. MIDAZOLAM HYDROCHLORIDE [Concomitant]
     Active Substance: MIDAZOLAM HYDROCHLORIDE
     Indication: Product used for unknown indication
     Dosage: 20 MG PER HOUR
     Route: 041
     Dates: start: 20200316, end: 20200320
  24. MIDAZOLAM HYDROCHLORIDE [Concomitant]
     Active Substance: MIDAZOLAM HYDROCHLORIDE
     Dosage: 20 MG PER HR
     Route: 041
     Dates: start: 20200327, end: 20200329
  25. GLYCOPHOS [Concomitant]
     Active Substance: SODIUM GLYCEROPHOSPHATE ANHYDROUS
     Indication: Product used for unknown indication
     Dosage: 1 DOSAGE FORM, QD
     Route: 048
     Dates: start: 20200319, end: 20200321
  26. GLYCOPHOS [Concomitant]
     Active Substance: SODIUM GLYCEROPHOSPHATE ANHYDROUS
     Dosage: 1 DOSAGE FORM, QD
     Route: 048
     Dates: start: 20200324, end: 20200324
  27. MOVICOL [Concomitant]
     Active Substance: POLYETHYLENE GLYCOL 3350\POTASSIUM CHLORIDE\SODIUM BICARBONATE\SODIUM CHLORIDE
     Indication: Product used for unknown indication
     Dosage: 1 DOSAGE FORM, QD
     Route: 048
     Dates: start: 20200320, end: 20200417
  28. NUTRISON PROTEIN PLUS MULTI FIBER [Concomitant]
     Indication: Product used for unknown indication
     Dosage: 10 ML PER HOUR
     Route: 048
     Dates: start: 20200317
  29. IRON\MINERALS\POTASSIUM IOD\SODIUM FLUORIDE\SODIUM MOLYBDATE\SODIUM SE [Concomitant]
     Active Substance: IRON\MINERALS\POTASSIUM IOD\SODIUM FLUORIDE\SODIUM MOLYBDATE\SODIUM SELENITE\ZINC
     Indication: Product used for unknown indication
     Dosage: 1 DOSAGE FORM, QD
     Route: 048
     Dates: start: 20200320, end: 20200419
  30. CERNEVIT [Concomitant]
     Active Substance: VITAMINS
     Indication: Product used for unknown indication
     Dosage: 1 DOSAGE FORM, QD
     Route: 048
     Dates: start: 20200320, end: 20200419
  31. VANCOMYCINE KABI [Concomitant]
     Indication: Product used for unknown indication
     Dosage: 1 G, QD
     Route: 042
     Dates: start: 20200407, end: 20200414
  32. ASPIRIN DL-LYSINE [Concomitant]
     Active Substance: ASPIRIN DL-LYSINE
     Indication: Product used for unknown indication
     Dosage: 100 MG, QD
     Route: 048
     Dates: start: 20200317, end: 20200408
  33. ACTRAPID [Concomitant]
     Active Substance: INSULIN HUMAN
     Indication: Product used for unknown indication
     Dosage: 1.5 IU PER HOUR
     Route: 042
     Dates: start: 20200317
  34. ACETAMINOPHEN [Concomitant]
     Active Substance: ACETAMINOPHEN
     Indication: Product used for unknown indication
     Dosage: 1 G, QID
     Route: 042
     Dates: start: 20200316
  35. EUTHYROX [Concomitant]
     Active Substance: LEVOTHYROXINE SODIUM
     Indication: Hypothyroidism
     Dosage: 150 UG, QD
     Route: 048
     Dates: start: 20200317
  36. ENOXAPARIN SODIUM [Concomitant]
     Active Substance: ENOXAPARIN SODIUM
     Indication: Product used for unknown indication
     Dosage: 80 MG, BID
     Route: 058
     Dates: start: 20200316
  37. PIPERACILLIN SODIUM\TAZOBACTAM SODIUM [Concomitant]
     Active Substance: PIPERACILLIN SODIUM\TAZOBACTAM SODIUM
     Indication: Product used for unknown indication
     Dosage: 4 G, QD
     Route: 042
     Dates: start: 20200316, end: 20200316
  38. CLARITHROMYCIN [Concomitant]
     Active Substance: CLARITHROMYCIN
     Indication: Product used for unknown indication
     Dosage: 500 MG, BID
     Route: 042
     Dates: start: 20200316, end: 20200318

REACTIONS (1)
  - Hepatic cytolysis [Recovered/Resolved]
